FAERS Safety Report 8170611-9 (Version None)
Quarter: 2012Q1

REPORT INFORMATION
  Report Type: 
  Country: None (occurrence: None)
  Receive Date: 20120228
  Receipt Date: 20120219
  Transmission Date: 20120608
  Serious: Yes (Death, Other)
  Sender: FDA-Public Use
  Company Number: DE-ROCHE-1026912

PATIENT
  Sex: Female
  Weight: 65 kg

DRUGS (2)
  1. MIRCERA [Suspect]
     Route: 042
     Dates: start: 20111012, end: 20111029
  2. MIRCERA [Suspect]
     Indication: NEPHROGENIC ANAEMIA
     Route: 042
     Dates: start: 20110715, end: 20111012

REACTIONS (2)
  - DEATH [None]
  - PNEUMONIA [None]
